FAERS Safety Report 21525725 (Version 2)
Quarter: 2022Q4

REPORT INFORMATION
  Report Type: Spontaneous
  Country: US (occurrence: US)
  Receive Date: 20221031
  Receipt Date: 20221130
  Transmission Date: 20230113
  Serious: No
  Sender: FDA-Public Use
  Company Number: US-BEH-2022151113

PATIENT
  Sex: Male

DRUGS (2)
  1. HUMATE-P [Suspect]
     Active Substance: HUMAN COAGULATION FACTOR VIII/VON WILLEBRAND FACTOR COMPLEX
     Indication: Von Willebrand^s disease
     Dosage: 1915 INTERNATIONAL UNIT, EVERY 12-24 HOURS, PRN
     Route: 042
     Dates: start: 20220302
  2. HUMATE-P [Suspect]
     Active Substance: HUMAN COAGULATION FACTOR VIII/VON WILLEBRAND FACTOR COMPLEX
     Indication: Haemorrhage

REACTIONS (3)
  - Epistaxis [Recovered/Resolved]
  - Epistaxis [Recovered/Resolved]
  - Contusion [Unknown]
